FAERS Safety Report 7314929-8 (Version None)
Quarter: 2011Q1

REPORT INFORMATION
  Report Type: 
  Country: None (occurrence: None)
  Receive Date: 20110225
  Receipt Date: 20100208
  Transmission Date: 20110831
  Serious: No
  Sender: FDA-Public Use
  Company Number: US-MYLANLABS-2010S1002086

PATIENT
  Sex: Female

DRUGS (3)
  1. YAZ /01502501/ [Concomitant]
     Indication: CONTRACEPTION
     Route: 048
  2. ISOTRETINOIN [Suspect]
     Indication: ACNE CYSTIC
     Route: 048
  3. ISOTRETINOIN [Suspect]
     Route: 048

REACTIONS (1)
  - PLATELET COUNT INCREASED [None]
